FAERS Safety Report 8365828-4 (Version None)
Quarter: 2012Q2

REPORT INFORMATION
  Report Type: 
  Country: None (occurrence: None)
  Receive Date: 20120515
  Receipt Date: 20120508
  Transmission Date: 20120825
  Serious: Yes (Hospitalization, Other)
  Sender: FDA-Public Use
  Company Number: DKLU1079286

PATIENT
  Age: 19 Year
  Sex: Male

DRUGS (1)
  1. DESOXYN [Suspect]
     Indication: PRODUCT USED FOR UNKNOWN INDICATION

REACTIONS (7)
  - ILEUS [None]
  - DECREASED APPETITE [None]
  - ALCOHOL USE [None]
  - SINUS TACHYCARDIA [None]
  - DRUG ABUSE [None]
  - CHEST PAIN [None]
  - WHITE BLOOD CELL COUNT INCREASED [None]
